FAERS Safety Report 10633369 (Version 1)
Quarter: 2014Q4

REPORT INFORMATION
  Report Type: Spontaneous
  Country: US (occurrence: US)
  Receive Date: 20141205
  Receipt Date: 20141205
  Transmission Date: 20150529
  Serious: No
  Sender: FDA-Public Use
  Company Number: US-BRISTOL-MYERS SQUIBB COMPANY-21224043

PATIENT
  Age: 77 Year
  Sex: Female
  Weight: 69.39 kg

DRUGS (4)
  1. BYETTA [Suspect]
     Active Substance: EXENATIDE
     Indication: TYPE 2 DIABETES MELLITUS
     Route: 058
     Dates: start: 20140715
  2. LANTUS [Concomitant]
     Active Substance: INSULIN GLARGINE
  3. INSULIN [Concomitant]
     Active Substance: INSULIN NOS
  4. LEVEMIR [Concomitant]
     Active Substance: INSULIN DETEMIR

REACTIONS (5)
  - Nausea [Recovering/Resolving]
  - Malaise [Unknown]
  - Vomiting [Unknown]
  - Headache [Recovered/Resolved]
  - Wrong technique in drug usage process [Unknown]
